FAERS Safety Report 26090108 (Version 1)
Quarter: 2025Q4

REPORT INFORMATION
  Report Type: Spontaneous
  Country: US (occurrence: US)
  Receive Date: 20251126
  Receipt Date: 20251126
  Transmission Date: 20260118
  Serious: No
  Sender: ROCHE
  Company Number: US-ROCHE-10000438759

PATIENT
  Age: 74 Year
  Sex: Male

DRUGS (4)
  1. VABYSMO [Suspect]
     Active Substance: FARICIMAB-SVOA
     Indication: Neovascular age-related macular degeneration
     Route: 050
  2. VABYSMO [Suspect]
     Active Substance: FARICIMAB-SVOA
  3. VABYSMO [Suspect]
     Active Substance: FARICIMAB-SVOA
  4. VABYSMO [Suspect]
     Active Substance: FARICIMAB-SVOA

REACTIONS (2)
  - Off label use [Unknown]
  - No adverse event [Unknown]
